FAERS Safety Report 7648908-8 (Version None)
Quarter: 2011Q3

REPORT INFORMATION
  Report Type: 
  Country: None (occurrence: None)
  Receive Date: 20110801
  Receipt Date: 20110726
  Transmission Date: 20111222
  Serious: Yes (Hospitalization)
  Sender: FDA-Public Use
  Company Number: JP-MERCK-1107USA00541

PATIENT
  Age: 70 Year
  Sex: Male

DRUGS (8)
  1. CRESTOR [Concomitant]
     Route: 065
  2. JANUVIA [Suspect]
     Indication: TYPE 2 DIABETES MELLITUS
     Route: 048
     Dates: start: 20110624, end: 20110628
  3. GLIMICRON [Concomitant]
     Route: 065
     Dates: start: 20110624, end: 20110628
  4. MIGLITOL [Suspect]
     Indication: TYPE 2 DIABETES MELLITUS
     Route: 048
     Dates: end: 20110628
  5. GLIMICRON [Concomitant]
     Route: 065
     Dates: start: 20100826, end: 20110623
  6. ACTOS [Concomitant]
     Route: 065
     Dates: start: 20101202, end: 20110628
  7. GLIMICRON [Concomitant]
     Route: 065
     Dates: end: 20100825
  8. ALLEGRA [Concomitant]
     Route: 065

REACTIONS (1)
  - INTESTINAL OBSTRUCTION [None]
